FAERS Safety Report 11873003 (Version 1)
Quarter: 2015Q4

REPORT INFORMATION
  Report Type: Spontaneous
  Country: US (occurrence: US)
  Receive Date: 20151228
  Receipt Date: 20151228
  Transmission Date: 20160305
  Serious: No
  Sender: FDA-Public Use
  Company Number: US-PFIZER INC-2015459833

PATIENT
  Age: 49 Year
  Sex: Male
  Weight: 102 kg

DRUGS (1)
  1. VIAGRA [Suspect]
     Active Substance: SILDENAFIL CITRATE
     Dosage: 5MG TWICE A DAY PILL
     Route: 048
     Dates: start: 201510

REACTIONS (3)
  - Erection increased [Not Recovered/Not Resolved]
  - Ejaculation disorder [Not Recovered/Not Resolved]
  - Semen volume increased [Not Recovered/Not Resolved]

NARRATIVE: CASE EVENT DATE: 20151110
